FAERS Safety Report 12560604 (Version 2)
Quarter: 2016Q3

REPORT INFORMATION
  Report Type: Spontaneous
  Country: US (occurrence: US)
  Receive Date: 20160715
  Receipt Date: 20160822
  Transmission Date: 20161109
  Serious: No
  Sender: FDA-Public Use
  Company Number: US-JNJFOC-20160606397

PATIENT
  Sex: Female
  Weight: 57.61 kg

DRUGS (3)
  1. VITAMIN D3 [Concomitant]
     Active Substance: CHOLECALCIFEROL
     Indication: BONE DISORDER
     Route: 065
  2. WOMENS ROGAINE UNSCENTED [Suspect]
     Active Substance: MINOXIDIL
     Indication: ALOPECIA
     Dosage: 1X PER DAY, 3 TO 5 TIMES PER WEEK USING DIRECTLY ONTO THE SCALP
     Route: 061
     Dates: start: 1990, end: 20160606
  3. WOMENS ROGAINE UNSCENTED [Suspect]
     Active Substance: MINOXIDIL
     Route: 061

REACTIONS (4)
  - Inappropriate schedule of drug administration [Not Recovered/Not Resolved]
  - Wrong technique in product usage process [Not Recovered/Not Resolved]
  - Product quality issue [Unknown]
  - Hair colour changes [Not Recovered/Not Resolved]
